FAERS Safety Report 8349730-X (Version None)
Quarter: 2012Q2

REPORT INFORMATION
  Report Type: 
  Country: None (occurrence: None)
  Receive Date: 20120510
  Receipt Date: 20110425
  Transmission Date: 20120825
  Serious: No
  Sender: FDA-Public Use
  Company Number: US-BAUSCH-2011BL002675

PATIENT
  Age: 51 Year
  Sex: Male

DRUGS (1)
  1. OFLOXACIN [Suspect]
     Route: 047
     Dates: start: 20110419, end: 20110424

REACTIONS (4)
  - INCORRECT ROUTE OF DRUG ADMINISTRATION [None]
  - EYE IRRITATION [None]
  - DRUG DISPENSING ERROR [None]
  - VISUAL IMPAIRMENT [None]
